FAERS Safety Report 9901649 (Version 2)
Quarter: 2014Q1

REPORT INFORMATION
  Report Type: Spontaneous
  Country: US (occurrence: US)
  Receive Date: 20140217
  Receipt Date: 20140217
  Transmission Date: 20141002
  Serious: Yes (Other)
  Sender: FDA-Public Use
  Company Number: ALCN2014US001094

PATIENT
  Age: 82 Year
  Sex: Female

DRUGS (4)
  1. ICAPS MV [Suspect]
     Indication: NUTRITIONAL SUPPLEMENTATION
     Dosage: 1 DF, QID
     Route: 048
     Dates: start: 201309
  2. PLAQUENIL [Concomitant]
     Indication: RHEUMATOID ARTHRITIS
  3. METHOTREXAT [Concomitant]
     Indication: RHEUMATOID ARTHRITIS
  4. AMLODIPINE [Concomitant]
     Indication: HYPERTENSION

REACTIONS (2)
  - Dizziness [Not Recovered/Not Resolved]
  - Confusional state [Not Recovered/Not Resolved]
